FAERS Safety Report 6881645-6 (Version None)
Quarter: 2010Q3

REPORT INFORMATION
  Report Type: 
  Country: None (occurrence: None)
  Receive Date: 20100729
  Receipt Date: 20100721
  Transmission Date: 20110219
  Serious: No
  Sender: FDA-Public Use
  Company Number: US-BIOGENIDEC-2010BI025180

PATIENT
  Age: 31 Year
  Sex: Female

DRUGS (2)
  1. TYSABRI [Suspect]
     Indication: MULTIPLE SCLEROSIS
     Route: 042
     Dates: start: 20090116
  2. AVONEX [Concomitant]
     Indication: MULTIPLE SCLEROSIS
     Route: 030

REACTIONS (5)
  - ASTHENIA [None]
  - COORDINATION ABNORMAL [None]
  - DISTURBANCE IN ATTENTION [None]
  - FATIGUE [None]
  - MENTAL IMPAIRMENT [None]
